FAERS Safety Report 5265640-9 (Version None)
Quarter: 2007Q1

REPORT INFORMATION
  Report Type: 
  Country: None (occurrence: None)
  Receive Date: 20061213
  Receipt Date: 20030611
  Transmission Date: 20070707
  Serious: Yes (Other)
  Sender: FDA-Public Use
  Company Number: 2003UW07473

PATIENT
  Age: 66 Year
  Sex: Male
  Weight: 59.4212 kg

DRUGS (1)
  1. IRESSA [Suspect]
     Dates: start: 20030601

REACTIONS (1)
  - OEDEMA PERIPHERAL [None]
